FAERS Safety Report 8802157 (Version 2)
Quarter: 2012Q4

REPORT INFORMATION
  Report Type: 
  Country: US (occurrence: US)
  Receive Date: 20120921
  Receipt Date: 20121018
  Transmission Date: 20130627
  Serious: No
  Sender: FDA-Public Use
  Company Number: PHEH2012US018197

PATIENT
  Age: 59 Year
  Sex: Female

DRUGS (11)
  1. TASIGNA [Suspect]
     Dosage: 300 mg, BID
     Route: 048
  2. ZYRTEC [Concomitant]
  3. BENADRYL [Concomitant]
  4. RHINOCORT AQUA [Concomitant]
  5. TUMS [Concomitant]
  6. NASALCROM [Concomitant]
  7. SYNTHROID [Concomitant]
  8. COMBIVENT [Concomitant]
  9. SCALPICIN [Concomitant]
  10. CORTISONE [Concomitant]
  11. VITAMIN D3 [Concomitant]

REACTIONS (6)
  - Piloerection [Unknown]
  - Extrasystoles [Unknown]
  - Rash [Unknown]
  - Pruritus [Unknown]
  - Asthenia [Unknown]
  - Dizziness [Unknown]
